FAERS Safety Report 6578724-X (Version None)
Quarter: 2010Q1

REPORT INFORMATION
  Report Type: 
  Country: None (occurrence: None)
  Receive Date: 20100202
  Receipt Date: 20100121
  Transmission Date: 20100710
  Serious: Yes (Hospitalization)
  Sender: FDA-Public Use
  Company Number: 2010SP003087

PATIENT
  Age: 66 Year
  Sex: Female

DRUGS (3)
  1. REFLEX (MIRTAZAPINE /01293201/) [Suspect]
     Indication: DEPRESSION
     Dosage: 15 MG; QD; PO
     Route: 048
     Dates: start: 20091228
  2. REFLEX (MIRTAZAPINE /01293201/) [Suspect]
     Indication: IRRITABILITY
     Dosage: 15 MG; QD; PO
     Route: 048
     Dates: start: 20091228
  3. DEPAS (ETIZOLAM) [Suspect]
     Indication: INSOMNIA
     Dosage: 0.5 MG; PRN; PO
     Route: 048
     Dates: start: 20091228, end: 20100105

REACTIONS (6)
  - COMA SCALE ABNORMAL [None]
  - DEPRESSED LEVEL OF CONSCIOUSNESS [None]
  - FEELING ABNORMAL [None]
  - MULTIPLE DRUG OVERDOSE INTENTIONAL [None]
  - NO THERAPEUTIC RESPONSE [None]
  - SUICIDE ATTEMPT [None]
